FAERS Safety Report 22585643 (Version 1)
Quarter: 2023Q2

REPORT INFORMATION
  Report Type: Report from Study
  Country: AR (occurrence: AR)
  Receive Date: 20230610
  Receipt Date: 20230610
  Transmission Date: 20230721
  Serious: Yes (Hospitalization, Other)
  Sender: FDA-Public Use
  Company Number: AR-002147023-NVSC2023AR130874

PATIENT
  Sex: Male

DRUGS (1)
  1. COSENTYX [Suspect]
     Active Substance: SECUKINUMAB
     Indication: Psoriasis
     Dosage: UNK
     Route: 065
     Dates: start: 20190925

REACTIONS (5)
  - Myocardial infarction [Unknown]
  - Coronary artery stenosis [Unknown]
  - Pneumonia [Unknown]
  - Secretion discharge [Unknown]
  - Cough [Unknown]
